FAERS Safety Report 9476040 (Version 1)
Quarter: 2013Q3

REPORT INFORMATION
  Report Type: Spontaneous
  Country: US (occurrence: None)
  Receive Date: 20130822
  Receipt Date: 20130822
  Transmission Date: 20140515
  Serious: No
  Sender: FDA-Public Use
  Company Number: None

PATIENT
  Age: 5 Year
  Sex: Male
  Weight: 23.59 kg

DRUGS (1)
  1. METADATE [Suspect]
     Indication: ATTENTION DEFICIT/HYPERACTIVITY DISORDER
     Dosage: .. .. Q ...
     Route: 048
     Dates: start: 20130522, end: 20130605

REACTIONS (2)
  - Drug effect decreased [None]
  - Product substitution issue [None]
